FAERS Safety Report 9226373 (Version 1)
Quarter: 2013Q2

REPORT INFORMATION
  Report Type: Report from Study
  Country: US (occurrence: US)
  Receive Date: 20130411
  Receipt Date: 20130411
  Transmission Date: 20140414
  Serious: Yes (Hospitalization, Other)
  Sender: FDA-Public Use
  Company Number: US-ABBOTT-13P-163-1072988-00

PATIENT
  Age: 60 Year
  Sex: Female
  Weight: 72.64 kg

DRUGS (5)
  1. HUMIRA [Suspect]
     Indication: PSORIASIS
     Route: 058
  2. HUMIRA [Suspect]
     Indication: PSORIATIC ARTHROPATHY
  3. EFFEXOR [Concomitant]
     Indication: DEPRESSION
  4. WELLBUTRIN [Concomitant]
     Indication: DEPRESSION
  5. LUNESTA [Concomitant]
     Indication: INSOMNIA
     Dosage: EVERY HS

REACTIONS (6)
  - Concussion [Recovered/Resolved]
  - Laceration [Recovered/Resolved]
  - Ligament rupture [Recovered/Resolved]
  - Road traffic accident [Recovered/Resolved]
  - Intervertebral disc protrusion [Recovered/Resolved]
  - Pain [Unknown]
